FAERS Safety Report 14012078 (Version 1)
Quarter: 2017Q3

REPORT INFORMATION
  Report Type: Spontaneous
  Country: US (occurrence: None)
  Receive Date: 20170926
  Receipt Date: 20170926
  Transmission Date: 20171128
  Serious: No
  Sender: FDA-Public Use
  Company Number: None

PATIENT
  Age: 65 Year
  Sex: Male

DRUGS (1)
  1. MYCOPHENOLATE MOF TAB 500 MG [Suspect]
     Active Substance: MYCOPHENOLATE MOFETIL

REACTIONS (7)
  - Diarrhoea [None]
  - Muscle spasms [None]
  - Headache [None]
  - Rhinorrhoea [None]
  - Anxiety [None]
  - Chest discomfort [None]
  - Chest pain [None]

NARRATIVE: CASE EVENT DATE: 20170926
